FAERS Safety Report 4550111-5 (Version None)
Quarter: 2005Q1

REPORT INFORMATION
  Report Type: 
  Country: None (occurrence: None)
  Receive Date: 20050107
  Receipt Date: 20041229
  Transmission Date: 20050727
  Serious: Yes (Hospitalization)
  Sender: FDA-Public Use
  Company Number: 236203K04USA

PATIENT
  Age: 52 Year
  Sex: Female

DRUGS (1)
  1. REBIF [Suspect]
     Indication: MULTIPLE SCLEROSIS
     Dosage: 44 MCG, 3 IN 1 WEEKS, SUBCUTANEOUS
     Route: 058
     Dates: start: 20030910

REACTIONS (6)
  - ASTHENIA [None]
  - BENIGN NEOPLASM OF THYROID GLAND [None]
  - FATIGUE [None]
  - HEART RATE INCREASED [None]
  - HYPERTHYROIDISM [None]
  - INSOMNIA [None]
